FAERS Safety Report 8417305 (Version 2)
Quarter: 2015Q1

REPORT INFORMATION
  Report Type: Report from Study
  Country: US (occurrence: US)
  Receive Date: 20120220
  Receipt Date: 20150318
  Transmission Date: 20150721
  Serious: Yes (Death)
  Sender: FDA-Public Use
  Company Number: US-ROCHE-1040345

PATIENT
  Sex: Female

DRUGS (37)
  1. XOPENEX [Concomitant]
     Active Substance: LEVALBUTEROL HYDROCHLORIDE
     Indication: ASTHMA
     Dosage: 4-6(OUTPATIENT): 1-2(INPATIENT)+ 4(SCHEDULED)TIMES
     Route: 045
  2. NYSTATIN. [Concomitant]
     Active Substance: NYSTATIN
     Indication: SKIN INFECTION
     Route: 061
  3. XOLAIR [Suspect]
     Active Substance: OMALIZUMAB
     Indication: ASTHMA
     Route: 065
     Dates: start: 20110708
  4. XOLAIR [Suspect]
     Active Substance: OMALIZUMAB
     Indication: HYPERSENSITIVITY
  5. TERBUTALINE [Concomitant]
     Active Substance: TERBUTALINE
     Indication: ASTHMA
     Dosage: 0.5CC; TWICE OUT PATIENT AND ONCE(INPATIENT)AS PRN
     Route: 030
  6. CELEBREX [Concomitant]
     Active Substance: CELECOXIB
     Indication: INFLAMMATION
  7. COVERA HS [Concomitant]
     Indication: HYPERTENSION
     Dosage: EVERY EVENING OR BEDTIME
     Route: 065
  8. FUROSEMIDE. [Concomitant]
     Active Substance: FUROSEMIDE
     Indication: FLUID RETENTION
     Dosage: 20MG ONCE IN AM, 10MG ONCE IN PM
     Route: 065
  9. PHENERGAN [Concomitant]
     Active Substance: PROMETHAZINE HYDROCHLORIDE
     Indication: NAUSEA
     Dosage: 3-4 TIME IN A DAY AS REQUIRED
     Route: 065
  10. BUDESONIDE. [Concomitant]
     Active Substance: BUDESONIDE
  11. IPRATROPIUM [Concomitant]
     Active Substance: IPRATROPIUM
     Indication: ASTHMA
     Dosage: 4-6(OUTPATIENT): 1-2(INPATIENT)+ 4(SCHEDULED)TIMES
     Route: 045
  12. MEDROL [Concomitant]
     Active Substance: METHYLPREDNISOLONE
     Indication: ASTHMA
     Route: 048
  13. KLOR-CON [Concomitant]
     Active Substance: POTASSIUM CHLORIDE
     Route: 065
  14. COLACE [Concomitant]
     Active Substance: DOCUSATE SODIUM
     Dosage: AS REQUIRED
     Route: 065
  15. FERROUS SULFATE [Concomitant]
     Active Substance: FERROUS SULFATE\FERROUS SULFATE, DRIED
     Indication: IRON DEFICIENCY ANAEMIA
     Route: 065
  16. PREDNISONE. [Concomitant]
     Active Substance: PREDNISONE
     Indication: ASTHMA
     Route: 065
     Dates: start: 20110708
  17. PULMOZYME [Suspect]
     Active Substance: DORNASE ALFA
     Indication: LARYNGEAL STENOSIS
  18. METFORMIN [Concomitant]
     Active Substance: METFORMIN HYDROCHLORIDE
     Indication: POLYCYSTIC OVARIES
     Route: 048
  19. OMEPRAZOLE. [Concomitant]
     Active Substance: OMEPRAZOLE
     Indication: GASTROOESOPHAGEAL REFLUX DISEASE
     Dosage: EVERY EVENING OR BEDTIME
     Route: 048
  20. PULMOZYME [Suspect]
     Active Substance: DORNASE ALFA
     Indication: STATUS ASTHMATICUS
     Route: 045
  21. BACTRIM [Suspect]
     Active Substance: SULFAMETHOXAZOLE\TRIMETHOPRIM
     Indication: PRODUCT USED FOR UNKNOWN INDICATION
     Route: 065
  22. BROVANA [Concomitant]
     Active Substance: ARFORMOTEROL TARTRATE
     Indication: ASTHMA
     Dosage: 15MCG/2ML
     Route: 065
  23. SINGULAIR [Concomitant]
     Active Substance: MONTELUKAST SODIUM
     Indication: HYPERSENSITIVITY
  24. RYNATAN (UNITED STATES) [Concomitant]
     Indication: HYPERSENSITIVITY
     Dosage: 25/9 MG
     Route: 048
  25. COVERA HS [Concomitant]
     Indication: TACHYCARDIA
  26. COLISTIN [Concomitant]
     Active Substance: COLISTIN
  27. MUCOMIST [Concomitant]
  28. SINGULAIR [Concomitant]
     Active Substance: MONTELUKAST SODIUM
     Indication: ASTHMA
     Dosage: EVERY EVENING OR BEDTIME.
     Route: 065
  29. COUMADIN [Concomitant]
     Active Substance: WARFARIN SODIUM
     Indication: DEEP VEIN THROMBOSIS
     Route: 065
  30. MONTELUKAST [Concomitant]
     Active Substance: MONTELUKAST SODIUM
  31. DILAUDID [Concomitant]
     Active Substance: HYDROMORPHONE HYDROCHLORIDE
     Dosage: 3-4 IN DAY AS REQUIRED
     Route: 065
  32. CELEBREX [Concomitant]
     Active Substance: CELECOXIB
     Indication: OSTEONECROSIS
     Route: 065
  33. DIOVAN [Concomitant]
     Active Substance: VALSARTAN
     Indication: HYPERTENSION
     Route: 065
  34. LUNESTA [Concomitant]
     Active Substance: ESZOPICLONE
     Indication: INSOMNIA
     Dosage: EVERY EVENING OR BEDTIME
     Route: 065
  35. MUCINEX [Concomitant]
     Active Substance: GUAIFENESIN
     Route: 065
  36. ALBUTEROL. [Concomitant]
     Active Substance: ALBUTEROL
  37. CEFUROXIME. [Concomitant]
     Active Substance: CEFUROXIME
     Route: 065

REACTIONS (2)
  - Death [Fatal]
  - Drug hypersensitivity [Unknown]
